FAERS Safety Report 9746480 (Version 1)
Quarter: 2013Q4

REPORT INFORMATION
  Report Type: Spontaneous
  Country: CA (occurrence: CA)
  Receive Date: 20131211
  Receipt Date: 20131211
  Transmission Date: 20140711
  Serious: Yes (Hospitalization)
  Sender: FDA-Public Use
  Company Number: CA-CUBIST PHARMACEUTICAL, INC.-2013CBST001297

PATIENT
  Sex: 0

DRUGS (3)
  1. CUBICIN [Suspect]
     Indication: SUBCUTANEOUS ABSCESS
     Dosage: 10 MG/KG, Q24H
     Route: 042
     Dates: start: 20131102, end: 20131128
  2. CUBICIN [Suspect]
     Indication: PYODERMA GANGRENOSUM
     Dosage: 750 MG, Q24H
     Route: 042
     Dates: start: 20131102, end: 20131128
  3. CUBICIN [Suspect]
     Indication: OFF LABEL USE

REACTIONS (2)
  - Drug ineffective for unapproved indication [Unknown]
  - Antimicrobial susceptibility test resistant [Unknown]
